FAERS Safety Report 25411330 (Version 2)
Quarter: 2025Q2

REPORT INFORMATION
  Report Type: Spontaneous
  Country: US (occurrence: US)
  Receive Date: 20250609
  Receipt Date: 20250612
  Transmission Date: 20250717
  Serious: No
  Sender: Unknown Manufacturer
  Company Number: US-KINIKSA PHARMACEUTICALS LTD.-2025KPU001511

PATIENT
  Age: 58 Year
  Sex: Male

DRUGS (1)
  1. ARCALYST [Suspect]
     Active Substance: RILONACEPT
     Indication: Pericarditis
     Dosage: 160 MILLIGRAM, QW
     Route: 058
     Dates: start: 20250514

REACTIONS (8)
  - Drug ineffective [Unknown]
  - Muscular weakness [Unknown]
  - Asthenia [Unknown]
  - Tension headache [Unknown]
  - Chest pain [Not Recovered/Not Resolved]
  - Inappropriate schedule of product administration [Unknown]
  - Dyspnoea [Unknown]
  - Injection site swelling [Recovering/Resolving]

NARRATIVE: CASE EVENT DATE: 20250501
